FAERS Safety Report 12481929 (Version 2)
Quarter: 2016Q4

REPORT INFORMATION
  Report Type: Spontaneous
  Country: US (occurrence: US)
  Receive Date: 20160620
  Receipt Date: 20161114
  Transmission Date: 20170207
  Serious: Yes (Hospitalization, Other)
  Sender: FDA-Public Use
  Company Number: US-SMITH AND NEPHEW, INC-2016SMT00522

PATIENT
  Age: 66 Year
  Sex: Male
  Weight: 117.91 kg

DRUGS (9)
  1. SIMVASTATIN. [Concomitant]
     Active Substance: SIMVASTATIN
  2. INSUILIN LANTUS [Concomitant]
     Dosage: 33 U, 1X/DAY
  3. ASPIRIN. [Concomitant]
     Active Substance: ASPIRIN
     Dosage: 81 MG, 1X/DAY
     Route: 048
  4. HUMALOG [Concomitant]
     Active Substance: INSULIN LISPRO
     Dosage: 5 U, 1X/DAY
  5. HUMALOG [Concomitant]
     Active Substance: INSULIN LISPRO
     Dosage: 3 U, 2X/DAY
  6. REGRANEX [Suspect]
     Active Substance: BECAPLERMIN
     Indication: DIABETIC FOOT
     Dosage: UNK, 3X/WEEK
     Route: 061
     Dates: start: 201605, end: 20160605
  7. LISINOPRIL. [Concomitant]
     Active Substance: LISINOPRIL
     Dosage: 40 MG, 1X/DAY
     Route: 048
  8. ATORVASTATIN [Concomitant]
     Active Substance: ATORVASTATIN
     Dosage: 80 MG, 1X/DAY
     Route: 048
  9. JANUMET [Concomitant]
     Active Substance: METFORMIN HYDROCHLORIDE\SITAGLIPTIN PHOSPHATE
     Dosage: 1 TABLETS, 2X/DAY
     Route: 048

REACTIONS (13)
  - Blood glucose increased [Unknown]
  - Fatigue [Unknown]
  - Neuropathy peripheral [Unknown]
  - Oedema [Unknown]
  - Wound secretion [Unknown]
  - Tenosynovitis [Unknown]
  - Polyuria [Unknown]
  - Wound infection [Recovered/Resolved]
  - Abscess [Recovered/Resolved]
  - Inappropriate schedule of drug administration [Recovered/Resolved]
  - Bone marrow oedema [Unknown]
  - Application site discolouration [Unknown]
  - Gout [Unknown]

NARRATIVE: CASE EVENT DATE: 2016
